FAERS Safety Report 5938247-5 (Version None)
Quarter: 2008Q4

REPORT INFORMATION
  Report Type: 
  Country: None (occurrence: None)
  Receive Date: 20081031
  Receipt Date: 20081021
  Transmission Date: 20090506
  Serious: Yes (Hospitalization, Disabling, Other)
  Sender: FDA-Public Use
  Company Number: US-PFIZER INC-2008091119

PATIENT
  Age: 45 Year
  Sex: Female

DRUGS (1)
  1. CELEBREX [Suspect]

REACTIONS (9)
  - ANXIETY [None]
  - ARTHRITIS [None]
  - CONNECTIVE TISSUE DISORDER [None]
  - DEPRESSION [None]
  - DIABETES MELLITUS [None]
  - FIBROMYALGIA [None]
  - IRRITABLE BOWEL SYNDROME [None]
  - MYOCARDIAL INFARCTION [None]
  - THYROID DISORDER [None]
